FAERS Safety Report 9513598 (Version 2)
Quarter: 2014Q2

REPORT INFORMATION
  Report Type: Spontaneous
  Country: US (occurrence: US)
  Receive Date: 20130910
  Receipt Date: 20140409
  Transmission Date: 20141212
  Serious: Yes (Other)
  Sender: FDA-Public Use
  Company Number: US-GLAXOSMITHKLINE-A1040719A

PATIENT
  Age: 46 Year
  Sex: Female

DRUGS (2)
  1. VERAMYST [Suspect]
     Indication: PRODUCT USED FOR UNKNOWN INDICATION
     Dosage: 27.5MCG UNKNOWN
     Route: 065
     Dates: start: 2011
  2. UNSPECIFIED MEDICATIONS [Concomitant]

REACTIONS (10)
  - Monoplegia [Unknown]
  - Lyme disease [Unknown]
  - Renal stone removal [Unknown]
  - Investigation [Unknown]
  - Vertebral osteophyte [Unknown]
  - Multiple allergies [Unknown]
  - Exposure to mould [Unknown]
  - Anaemia [Unknown]
  - Scoliosis [Unknown]
  - Intervertebral disc degeneration [Unknown]
